FAERS Safety Report 19738913 (Version 2)
Quarter: 2021Q3

REPORT INFORMATION
  Report Type: Report from Study
  Country: CZ (occurrence: CZ)
  Receive Date: 20210823
  Receipt Date: 20210907
  Transmission Date: 20211014
  Serious: Yes (Hospitalization, Other)
  Sender: FDA-Public Use
  Company Number: CZ-BRISTOL-MYERS SQUIBB COMPANY-BMS-2021-081815

PATIENT
  Age: 66 Year
  Sex: Female
  Weight: 66 kg

DRUGS (7)
  1. LETROX [Concomitant]
     Active Substance: LEVOTHYROXINE SODIUM
     Indication: HYPERTHYROIDISM
     Dosage: 100 MICROGRAM
     Route: 048
     Dates: start: 20210512
  2. MAGNESIUM LACTATE [Concomitant]
     Active Substance: MAGNESIUM LACTATE
     Indication: HYPOMAGNESAEMIA
     Dosage: 3000 MILLIGRAM
     Route: 048
     Dates: start: 20210506
  3. XADOS [Concomitant]
     Active Substance: BILASTINE
     Indication: PRURITUS
     Dosage: 60 MILLIGRAM
     Route: 048
     Dates: start: 20210414
  4. KALII CHLORIDUM [Concomitant]
     Indication: HYPOKALAEMIA
     Dosage: 2 GRAM
     Route: 048
     Dates: start: 20210325
  5. BMS?986321?01 [Suspect]
     Active Substance: INVESTIGATIONAL PRODUCT
     Indication: MALIGNANT MELANOMA
     Dosage: 0.40 MILLIGRAM
     Route: 042
     Dates: start: 20210304, end: 20210722
  6. NIVOLUMAB [Suspect]
     Active Substance: NIVOLUMAB
     Indication: MALIGNANT MELANOMA
     Dosage: 360 MILLIGRAM
     Route: 042
     Dates: start: 20210304, end: 20210722
  7. INDAPAMID STADA [Concomitant]
     Indication: PRODUCT USED FOR UNKNOWN INDICATION
     Dosage: 1.5 MILLIGRAM
     Route: 048
     Dates: start: 2010

REACTIONS (1)
  - Immune-mediated lung disease [Recovering/Resolving]

NARRATIVE: CASE EVENT DATE: 20210816
